FAERS Safety Report 10142556 (Version 1)
Quarter: 2014Q2

REPORT INFORMATION
  Report Type: Spontaneous
  Country: FR (occurrence: FR)
  Receive Date: 20140430
  Receipt Date: 20140430
  Transmission Date: 20141212
  Serious: Yes (Other)
  Sender: FDA-Public Use
  Company Number: FR-AMGEN-FRASP2014030189

PATIENT
  Sex: Male

DRUGS (2)
  1. NPLATE [Suspect]
     Indication: IMMUNE THROMBOCYTOPENIC PURPURA
     Route: 065
  2. RITUXIMAB [Concomitant]
     Indication: IMMUNE THROMBOCYTOPENIC PURPURA

REACTIONS (8)
  - Drug ineffective [Unknown]
  - Neutropenia [Unknown]
  - Anaemia [Unknown]
  - Erythroblastosis [Unknown]
  - Haematuria [Unknown]
  - Monocytosis [Unknown]
  - Myelocytosis [Unknown]
  - White blood cell disorder [Unknown]
